FAERS Safety Report 8792456 (Version 1)
Quarter: 2012Q4

REPORT INFORMATION
  Report Type: 
  Country: US (occurrence: US)
  Receive Date: 20120918
  Receipt Date: 20120918
  Transmission Date: 20130627
  Serious: No
  Sender: FDA-Public Use
  Company Number: US-BAYER-2012-093396

PATIENT
  Age: 24 Year
  Sex: Female

DRUGS (1)
  1. MIRENA [Suspect]
     Indication: CONTRACEPTION
     Dosage: 20 mcg/24hr, CONT
     Route: 015
     Dates: start: 201010, end: 201102

REACTIONS (5)
  - Abdominal pain lower [None]
  - Dyspareunia [None]
  - Vaginal disorder [None]
  - Dyspareunia [Not Recovered/Not Resolved]
  - Pain [None]
